FAERS Safety Report 4668204-0 (Version None)
Quarter: 2005Q2

REPORT INFORMATION
  Report Type: 
  Country: None (occurrence: None)
  Receive Date: 20050523
  Receipt Date: 20041020
  Transmission Date: 20051028
  Serious: Yes (Other)
  Sender: FDA-Public Use
  Company Number: PHEH2004US11348

PATIENT
  Sex: Male

DRUGS (2)
  1. PAMIDRONATE DISODIUM [Suspect]
     Dosage: 90 MG, QMO
     Route: 042
  2. ZOMETA [Suspect]
     Dosage: 4 MG, QMO
     Route: 042

REACTIONS (1)
  - OSTEONECROSIS [None]
